FAERS Safety Report 9016065 (Version 1)
Quarter: 2013Q1

REPORT INFORMATION
  Report Type: Spontaneous
  Country: RU (occurrence: RU)
  Receive Date: 20130116
  Receipt Date: 20130116
  Transmission Date: 20140127
  Serious: Yes (Death)
  Sender: FDA-Public Use
  Company Number: RU-ACTELION-A-CH2013-77543

PATIENT
  Age: 52 Year
  Sex: Female

DRUGS (6)
  1. TRACLEER [Suspect]
     Indication: PULMONARY ARTERIAL HYPERTENSION
     Dosage: 125 MG, BID
     Route: 048
     Dates: start: 201212
  2. TRACLEER [Suspect]
     Dosage: 62.5 MG, BID
     Route: 048
     Dates: start: 201211, end: 201212
  3. WARFARIN [Concomitant]
  4. VEROSPIRON [Concomitant]
  5. FUROSEMIDE [Concomitant]
  6. MILDRONAT [Concomitant]

REACTIONS (1)
  - Cardiopulmonary failure [Fatal]
